FAERS Safety Report 9679589 (Version 1)
Quarter: 2013Q4

REPORT INFORMATION
  Report Type: Spontaneous
  Country: US (occurrence: US)
  Receive Date: 20131109
  Receipt Date: 20131109
  Transmission Date: 20140711
  Serious: No
  Sender: FDA-Public Use
  Company Number: US-SA-2013SA105300

PATIENT
  Age: 53 Year
  Sex: Female

DRUGS (2)
  1. ALLEGRA-D [Suspect]
     Indication: SINUS CONGESTION
     Route: 048
     Dates: start: 20131009, end: 20131009
  2. AMOXICILLIN [Suspect]
     Indication: SINUSITIS
     Route: 065
     Dates: start: 20131009

REACTIONS (3)
  - Anxiety [Not Recovered/Not Resolved]
  - Feeling jittery [Not Recovered/Not Resolved]
  - Sleep disorder [Not Recovered/Not Resolved]
